FAERS Safety Report 4548978-X (Version None)
Quarter: 2004Q4

REPORT INFORMATION
  Report Type: 
  Country: None (occurrence: None)
  Receive Date: 20041227
  Receipt Date: 20041012
  Transmission Date: 20050328
  Serious: No
  Sender: FDA-Public Use
  Company Number: 04P-163-0276931-00

PATIENT
  Age: 36 Year
  Sex: Female
  Weight: 136 kg

DRUGS (11)
  1. HUMIRA [Suspect]
     Indication: RHEUMATOID ARTHRITIS
     Dosage: 40 MG, 1 IN 2 WK, SUBCUTANEOUS
     Route: 058
     Dates: start: 20040928
  2. ASPIRIN [Concomitant]
  3. LEVOTHYROXINE SODIUM [Concomitant]
  4. CYCLOBENZAPRINE [Concomitant]
  5. GLIMEPIRIDE [Concomitant]
  6. PINDOLOL [Concomitant]
  7. CETIRIZINE HCL [Concomitant]
  8. TRIAMCINOLONE ACETONIDE [Concomitant]
  9. SLOVENT [Concomitant]
  10. ACETAMINOPHEN [Concomitant]
  11. ORTHOEVER [Concomitant]

REACTIONS (1)
  - MUSCLE TWITCHING [None]
